FAERS Safety Report 23262417 (Version 2)
Quarter: 2023Q4

REPORT INFORMATION
  Report Type: Spontaneous
  Country: BR (occurrence: BR)
  Receive Date: 20231205
  Receipt Date: 20231219
  Transmission Date: 20240109
  Serious: Yes (Other)
  Sender: FDA-Public Use
  Company Number: BR-ASTELLAS-2023US035829

PATIENT
  Age: 87 Year
  Sex: Male

DRUGS (22)
  1. MYRBETRIQ [Suspect]
     Active Substance: MIRABEGRON
     Indication: Pollakiuria
     Route: 048
     Dates: end: 2023
  2. MYRBETRIQ [Suspect]
     Active Substance: MIRABEGRON
     Route: 048
  3. RIVOTRIL [Concomitant]
     Active Substance: CLONAZEPAM
     Indication: Sleep disorder
     Dosage: UNK UNK, UNKNOWN FREQ.
     Route: 065
  4. OMEPRAZOLE [Concomitant]
     Active Substance: OMEPRAZOLE
     Indication: Gastrointestinal disorder
     Route: 065
  5. DONEPEZIL [Concomitant]
     Active Substance: DONEPEZIL
     Indication: Memory impairment
     Dosage: UNK UNK, UNKNOWN FREQ.
     Route: 065
  6. FERROUS BISGLYCINATE [Concomitant]
     Active Substance: FERROUS BISGLYCINATE
     Indication: Anaemia
     Route: 065
  7. FERROUS BISGLYCINATE [Concomitant]
     Active Substance: FERROUS BISGLYCINATE
     Indication: Immune system disorder
  8. FOLIFOLIN [Concomitant]
     Indication: Anaemia
     Dosage: UNK UNK, UNKNOWN FREQ.
     Route: 065
  9. FOLIFOLIN [Concomitant]
     Indication: Immune system disorder
  10. TARGIFOR [Concomitant]
     Indication: Anaemia
     Route: 065
  11. TARGIFOR [Concomitant]
     Indication: Immune system disorder
  12. OSCAL [Concomitant]
     Active Substance: CALCIUM CARBONATE
     Indication: Anaemia
     Dosage: UNK UNK, UNKNOWN FREQ.
     Route: 065
  13. OSCAL [Concomitant]
     Active Substance: CALCIUM CARBONATE
     Indication: Immune system disorder
  14. DPREV [Concomitant]
     Indication: Anaemia
     Dosage: UNK UNK, UNKNOWN FREQ.
     Route: 065
  15. DPREV [Concomitant]
     Indication: Immune system disorder
  16. LOSARTAN POTASSIUM [Concomitant]
     Active Substance: LOSARTAN POTASSIUM
     Indication: Blood pressure abnormal
     Route: 065
  17. AMLODIPINE BESYLATE [Concomitant]
     Active Substance: AMLODIPINE BESYLATE
     Indication: Blood pressure increased
     Route: 065
  18. AVODART [Concomitant]
     Active Substance: DUTASTERIDE
     Indication: Prostatic disorder
     Dosage: 0.5 MG, UNKNOWN FREQ.
     Route: 065
  19. ESCITALOPRAM OXALATE [Concomitant]
     Active Substance: ESCITALOPRAM OXALATE
     Indication: Anxiety
     Dosage: UNK UNK, UNKNOWN FREQ.
     Route: 065
  20. ROSUVASTATIN [Concomitant]
     Active Substance: ROSUVASTATIN
     Indication: Product used for unknown indication
     Route: 065
  21. Vitafer [Concomitant]
     Indication: Anaemia
     Route: 065
  22. Vitafer [Concomitant]
     Indication: Immune system disorder

REACTIONS (6)
  - Haemoglobin decreased [Unknown]
  - Abdominal neoplasm [Recovered/Resolved]
  - Red cell distribution width increased [Unknown]
  - Faeces discoloured [Unknown]
  - Abnormal faeces [Unknown]
  - Gastrointestinal disorder [Unknown]
